FAERS Safety Report 9406040 (Version 1)
Quarter: 2013Q3

REPORT INFORMATION
  Report Type: Spontaneous
  Country: FR (occurrence: FR)
  Receive Date: 20130717
  Receipt Date: 20130717
  Transmission Date: 20140515
  Serious: Yes (Life-Threatening, Hospitalization)
  Sender: FDA-Public Use
  Company Number: FR-PFIZER INC-2013206930

PATIENT
  Age: 76 Year
  Sex: Male

DRUGS (2)
  1. ADVIL [Suspect]
     Indication: BACK PAIN
     Dosage: 400 MG
     Route: 048
     Dates: start: 20130523, end: 20130616
  2. XARELTO [Suspect]
     Indication: PHLEBITIS
     Dosage: 20 MG, 1X/DAY
     Route: 048
     Dates: start: 201305, end: 20130616

REACTIONS (3)
  - Anaemia [Recovered/Resolved]
  - Melaena [Recovered/Resolved]
  - Loss of consciousness [Recovered/Resolved]
